FAERS Safety Report 6724740-4 (Version None)
Quarter: 2010Q2

REPORT INFORMATION
  Report Type: 
  Country: None (occurrence: None)
  Receive Date: 20100511
  Receipt Date: 20100427
  Transmission Date: 20101027
  Serious: Yes (Hospitalization)
  Sender: FDA-Public Use
  Company Number: 7003181

PATIENT
  Age: 37 Year
  Sex: Female
  Weight: 66 kg

DRUGS (9)
  1. REBIF [Suspect]
     Indication: MULTIPLE SCLEROSIS
     Dosage: 44 MCG, 1 IN 1 WK, SUBCUTANEOUS, 44 MCG, 2 IN 1 WK, SUBCUTANEOUS, 44 MG, 3 IN 1 WK, SUBCUTANEOUS
     Route: 058
     Dates: start: 20100301, end: 20100401
  2. REBIF [Suspect]
     Indication: MULTIPLE SCLEROSIS
     Dosage: 44 MCG, 1 IN 1 WK, SUBCUTANEOUS, 44 MCG, 2 IN 1 WK, SUBCUTANEOUS, 44 MG, 3 IN 1 WK, SUBCUTANEOUS
     Route: 058
     Dates: start: 20050412
  3. ZANAFLEX [Concomitant]
  4. TOPAMAX [Concomitant]
  5. WELLBUTRIN XL (BUPROPIION HYDROCHLORIDE) [Concomitant]
  6. XANAX [Concomitant]
  7. PROTONIX [Concomitant]
  8. ZYRTEC (CIRRUS) [Concomitant]
  9. UNSPECIFIED DIET PILLS (ALL OTHER THERAPEUTIC PRODUCTS) [Concomitant]

REACTIONS (5)
  - ALCOHOL USE [None]
  - DEPRESSION [None]
  - FRUSTRATION [None]
  - HYPERTENSION [None]
  - INJECTION SITE REACTION [None]
